FAERS Safety Report 21348249 (Version 1)
Quarter: 2022Q3

REPORT INFORMATION
  Report Type: Spontaneous
  Country: PT (occurrence: PT)
  Receive Date: 20220919
  Receipt Date: 20220919
  Transmission Date: 20221026
  Serious: Yes (Other)
  Sender: FDA-Public Use
  Company Number: PT-BAXTER-2022BAX019167

PATIENT
  Age: 54 Year
  Sex: Male

DRUGS (11)
  1. DEXAMETHASONE [Suspect]
     Active Substance: DEXAMETHASONE
     Indication: Plasma cell myeloma
     Dosage: THIRD-LINE TREATMENT X 3 CYCLES
     Route: 065
     Dates: start: 20220211, end: 20220505
  2. DEXAMETHASONE [Suspect]
     Active Substance: DEXAMETHASONE
     Dosage: FOURTH-LINE TREATMENT X 3 CYCLES
     Route: 065
     Dates: start: 20220523, end: 20220808
  3. DEXAMETHASONE [Suspect]
     Active Substance: DEXAMETHASONE
     Dosage: FIRST-LINE TREATMENT X 8 CYCLES- WITH VGPR (VERY GOOD PARTIAL RESPONSE)
     Route: 065
     Dates: start: 20180223, end: 20180731
  4. POMALIDOMIDE [Suspect]
     Active Substance: POMALIDOMIDE
     Indication: Plasma cell myeloma
     Dosage: FOURTH-LINE TREATMENT X 3 CYCLES
     Route: 065
     Dates: start: 20220523, end: 20220808
  5. PREDNISOLONE [Suspect]
     Active Substance: PREDNISOLONE
     Indication: Plasma cell myeloma
     Dosage: SECOND-LINE TREATMENT (TACYDEX)
     Route: 065
     Dates: start: 20201028, end: 20220126
  6. IXAZOMIB [Suspect]
     Active Substance: IXAZOMIB
     Indication: Plasma cell myeloma
     Dosage: FOURTH-LINE TREATMENT X 3 CYCLES
     Route: 065
     Dates: start: 20220523, end: 20220808
  7. DARATUMUMAB [Suspect]
     Active Substance: DARATUMUMAB
     Indication: Plasma cell myeloma
     Dosage: SECOND-LINE TREATMENT
     Route: 065
     Dates: start: 20201028, end: 20220126
  8. CARFILZOMIB [Suspect]
     Active Substance: CARFILZOMIB
     Indication: Plasma cell myeloma
     Dosage: THIRD-LINE TREATMENT X 3 CYCLES
     Route: 065
     Dates: start: 20220211, end: 20220505
  9. CYCLOPHOSPHAMIDE [Suspect]
     Active Substance: CYCLOPHOSPHAMIDE
     Indication: Plasma cell myeloma
     Dosage: SECOND-LINE TREATMENT (TACYDEX)
     Route: 065
     Dates: start: 20201028, end: 20220126
  10. THALIDOMIDE [Suspect]
     Active Substance: THALIDOMIDE
     Indication: Plasma cell myeloma
     Dosage: FIRST-LINE TREATMENT (TACYDEX) X 8 CYCLES- WITH VGPR (VERY GOOD PARTIAL RESPONSE)
     Route: 065
     Dates: start: 20180223, end: 20180731
  11. THALIDOMIDE [Suspect]
     Active Substance: THALIDOMIDE
     Dosage: SECOND-LINE TREATMENT (TACYDEX)
     Route: 065
     Dates: start: 20201028, end: 20220126

REACTIONS (2)
  - Disease progression [Unknown]
  - Plasma cell myeloma [Unknown]
